FAERS Safety Report 6096547-5 (Version None)
Quarter: 2009Q1

REPORT INFORMATION
  Report Type: 
  Country: None (occurrence: None)
  Receive Date: 20090225
  Receipt Date: 20090225
  Transmission Date: 20090719
  Serious: No
  Sender: FDA-Public Use
  Company Number: None

PATIENT
  Sex: Male
  Weight: 99.7913 kg

DRUGS (1)
  1. METOPROLOL SUCCINATE [Suspect]
     Indication: STENT PLACEMENT
     Dosage: 25 MG DAILY MOUTH
     Route: 048
     Dates: start: 20081216, end: 20090209

REACTIONS (4)
  - LACRIMATION INCREASED [None]
  - PARAESTHESIA [None]
  - SOMNOLENCE [None]
  - TYPE 2 DIABETES MELLITUS [None]
